FAERS Safety Report 24765565 (Version 2)
Quarter: 2024Q4

REPORT INFORMATION
  Report Type: Spontaneous
  Country: AU (occurrence: AU)
  Receive Date: 20241223
  Receipt Date: 20241226
  Transmission Date: 20250115
  Serious: Yes (Death, Hospitalization, Other)
  Sender: ROCHE
  Company Number: AU-ROCHE-10000068988

PATIENT
  Age: 48 Year
  Sex: Male

DRUGS (14)
  1. EVRYSDI [Suspect]
     Active Substance: RISDIPLAM
     Indication: Spinal muscular atrophy
     Dosage: 6.6 ML
     Route: 048
     Dates: end: 20240831
  2. FUROSEMIDE [Concomitant]
     Active Substance: FUROSEMIDE
     Indication: Hypervolaemia
     Dates: start: 2023
  3. SPIRONOLACTONE [Concomitant]
     Active Substance: SPIRONOLACTONE
     Indication: Hypervolaemia
     Dates: start: 202203
  4. Glyclazide MR [Concomitant]
  5. ALLOPURINOL [Concomitant]
     Active Substance: ALLOPURINOL
  6. LINAGLIPTIN [Concomitant]
     Active Substance: LINAGLIPTIN
  7. Ozempic s/c [Concomitant]
  8. CALTRATE [Concomitant]
     Active Substance: CALCIUM CARBONATE
  9. VITAMIN D NOS [Concomitant]
     Active Substance: CHOLECALCIFEROL\ERGOCALCIFEROL
  10. Iron tabs [Concomitant]
     Dosage: 1 ALT DAYS
  11. KEFLEX [Concomitant]
     Active Substance: CEPHALEXIN
  12. IBUPROFEN [Concomitant]
     Active Substance: IBUPROFEN
  13. PANADOL [Concomitant]
     Active Substance: ACETAMINOPHEN
  14. Clotrimazole  1% cream [Concomitant]

REACTIONS (4)
  - Respiratory failure [Fatal]
  - Right ventricular failure [Unknown]
  - Pneumonia [Unknown]
  - General physical health deterioration [Unknown]

NARRATIVE: CASE EVENT DATE: 20240101
